FAERS Safety Report 13232716 (Version 4)
Quarter: 2017Q2

REPORT INFORMATION
  Report Type: Report from Study
  Country: US (occurrence: US)
  Receive Date: 20170214
  Receipt Date: 20170504
  Transmission Date: 20170830
  Serious: Yes (Death, Hospitalization)
  Sender: FDA-Public Use
  Company Number: US-ACTELION-A-NJ2016-143118

PATIENT
  Age: 73 Year
  Sex: Female
  Weight: 67.12 kg

DRUGS (3)
  1. OPSUMIT [Suspect]
     Active Substance: MACITENTAN
     Indication: PULMONARY ARTERIAL HYPERTENSION
     Dosage: 10 MG, QD
     Route: 048
     Dates: start: 20151111
  2. SILDENAFIL CITRATE. [Concomitant]
     Active Substance: SILDENAFIL CITRATE
  3. OPSUMIT [Suspect]
     Active Substance: MACITENTAN
     Dosage: UNK
     Route: 048
     Dates: end: 20170130

REACTIONS (13)
  - Hypotension [Unknown]
  - Feeling abnormal [Unknown]
  - Cough [Unknown]
  - Clostridium difficile colitis [Unknown]
  - Lung infection [Unknown]
  - Staphylococcal infection [Unknown]
  - Dizziness [Unknown]
  - Ear disorder [Unknown]
  - Pneumonia [Fatal]
  - Peripheral swelling [Unknown]
  - Asthenia [Unknown]
  - Staphylococcal sepsis [Fatal]
  - Rheumatoid arthritis [Unknown]
